FAERS Safety Report 20369410 (Version 1)
Quarter: 2022Q1

REPORT INFORMATION
  Report Type: Spontaneous
  Country: None (occurrence: GB)
  Receive Date: 20220124
  Receipt Date: 20220124
  Transmission Date: 20220423
  Serious: Yes (Hospitalization, Other)
  Sender: FDA-Public Use
  Company Number: GB-Akron, Inc.-2124225

PATIENT
  Age: 66 Year
  Sex: Male

DRUGS (3)
  1. MYCOPHENOLATE MOFETIL [Suspect]
     Active Substance: MYCOPHENOLATE MOFETIL
  2. LEVOCARNITINE [Suspect]
     Active Substance: LEVOCARNITINE
  3. PREDNISOLONE [Suspect]
     Active Substance: PREDNISOLONE

REACTIONS (14)
  - Asthenia [Recovered/Resolved]
  - Balance disorder [Recovered/Resolved]
  - Lethargy [Recovered/Resolved]
  - Tremor [Recovered/Resolved]
  - Paraesthesia [Recovered/Resolved]
  - Sensory loss [Recovered/Resolved]
  - Muscular weakness [Recovered/Resolved]
  - Psychomotor skills impaired [Recovered/Resolved]
  - Hyporeflexia [Recovered/Resolved]
  - Muscle twitching [Recovered/Resolved]
  - Bladder dysfunction [Recovered/Resolved]
  - Functional gastrointestinal disorder [Recovered/Resolved]
  - Joint position sense decreased [Recovered/Resolved]
  - Neuropathy peripheral [Recovered/Resolved]
